FAERS Safety Report 17017086 (Version 1)
Quarter: 2019Q4

REPORT INFORMATION
  Report Type: Spontaneous
  Country: US (occurrence: US)
  Receive Date: 20191004
  Receipt Date: 20191004
  Transmission Date: 20200122
  Serious: No
  Sender: FDA-Public Use
  Company Number: None

PATIENT
  Age: 45 Year
  Sex: Female

DRUGS (1)
  1. CAPECITABINE 500MG [Suspect]
     Active Substance: CAPECITABINE
     Indication: BREAST CANCER
     Dosage: ?          OTHER DOSE:1500MG 1000MG   ;OTHER FREQUENCY:AM  PM;?
     Route: 048
     Dates: start: 20190702

REACTIONS (3)
  - Palmar-plantar erythrodysaesthesia syndrome [None]
  - Headache [None]
  - Joint swelling [None]

NARRATIVE: CASE EVENT DATE: 20190702
